FAERS Safety Report 25422989 (Version 1)
Quarter: 2025Q2

REPORT INFORMATION
  Report Type: Spontaneous
  Country: US (occurrence: US)
  Receive Date: 20250611
  Receipt Date: 20250611
  Transmission Date: 20250716
  Serious: No
  Sender: TEVA
  Company Number: US-TEVA-VS-3339792

PATIENT
  Age: 40 Year
  Sex: Female

DRUGS (1)
  1. UZEDY [Suspect]
     Active Substance: RISPERIDONE
     Indication: Schizoaffective disorder
     Route: 065
     Dates: start: 20250415, end: 2025

REACTIONS (1)
  - Akathisia [Recovered/Resolved]

NARRATIVE: CASE EVENT DATE: 20250422
